FAERS Safety Report 20912154 (Version 1)
Quarter: 2022Q2

REPORT INFORMATION
  Report Type: Spontaneous
  Country: US (occurrence: None)
  Receive Date: 20220603
  Receipt Date: 20220603
  Transmission Date: 20220721
  Serious: No
  Sender: FDA-Public Use
  Company Number: 2022A176918

PATIENT
  Sex: Male
  Weight: 99.8 kg

DRUGS (5)
  1. BRILINTA [Suspect]
     Active Substance: TICAGRELOR
     Indication: Stent placement
     Route: 048
  2. BRILINTA [Suspect]
     Active Substance: TICAGRELOR
     Indication: Stent placement
     Dosage: CUTTING THE BRILINTA IN HALF (MISUSE).
     Route: 048
  3. BRILINTA [Suspect]
     Active Substance: TICAGRELOR
     Indication: Stent placement
     Route: 048
     Dates: start: 202204
  4. METFORMIN [Concomitant]
     Active Substance: METFORMIN HYDROCHLORIDE
  5. ASPIRIN [Concomitant]
     Active Substance: ASPIRIN

REACTIONS (7)
  - Macular degeneration [Unknown]
  - Blood glucose abnormal [Unknown]
  - Memory impairment [Unknown]
  - Weight increased [Unknown]
  - Intentional product misuse [Recovered/Resolved]
  - Inability to afford medication [Unknown]
  - Insurance issue [Unknown]
